FAERS Safety Report 24533178 (Version 5)
Quarter: 2025Q4

REPORT INFORMATION
  Report Type: Report from Study
  Country: CH (occurrence: None)
  Receive Date: 20241022
  Receipt Date: 20251113
  Transmission Date: 20260118
  Serious: Yes (Hospitalization, Other)
  Sender: UCB
  Company Number: CH-UCBSA-2024053522

PATIENT
  Age: 60 Year
  Weight: 62 kg

DRUGS (2)
  1. BIMEKIZUMAB [Suspect]
     Active Substance: BIMEKIZUMAB
     Indication: Psoriasis
     Dosage: 320 MILLIGRAM
  2. BIMEKIZUMAB [Suspect]
     Active Substance: BIMEKIZUMAB
     Indication: Psoriatic arthropathy

REACTIONS (12)
  - Hepatitis acute [Not Recovered/Not Resolved]
  - Acute on chronic liver failure [Not Recovered/Not Resolved]
  - Liver transplant [Recovered/Resolved]
  - Acute hepatic failure [Recovered/Resolved]
  - Hepatic cirrhosis [Recovered/Resolved]
  - Hepatitis cholestatic [Recovered/Resolved]
  - Jaundice [Not Recovered/Not Resolved]
  - Fatigue [Unknown]
  - Cholelithiasis [Not Recovered/Not Resolved]
  - Pleural effusion [Not Recovered/Not Resolved]
  - Generalised oedema [Not Recovered/Not Resolved]
  - Intentional dose omission [Unknown]
